FAERS Safety Report 4797651-1 (Version None)
Quarter: 2005Q3

REPORT INFORMATION
  Report Type: 
  Country: None (occurrence: None)
  Receive Date: 20050929
  Receipt Date: 20050712
  Transmission Date: 20060218
  Serious: No
  Sender: FDA-Public Use
  Company Number: 05P-163-0305559-00

PATIENT
  Age: 72 Year
  Sex: Female

DRUGS (10)
  1. HUMIRA [Suspect]
     Dosage: 40 MG, ONCE, SUBCUTANEOUS; 40 MG, 1 IN 1 WK, SUBCUTANEOUS
     Route: 058
     Dates: start: 20030401, end: 20041201
  2. HUMIRA [Suspect]
     Dosage: 40 MG, ONCE, SUBCUTANEOUS; 40 MG, 1 IN 1 WK, SUBCUTANEOUS
     Route: 058
     Dates: start: 20050101, end: 20050201
  3. HUMIRA [Suspect]
     Dosage: 40 MG, ONCE, SUBCUTANEOUS; 40 MG, 1 IN 1 WK, SUBCUTANEOUS
     Route: 058
     Dates: start: 20050601, end: 20050601
  4. ATENOLOL [Concomitant]
  5. PREDNISONE [Concomitant]
  6. VICODIN [Concomitant]
  7. LEVOTHYROXINE SODIUM [Concomitant]
  8. THEOPHYLLINE [Concomitant]
  9. ENALAPRIL MALEATE [Concomitant]
  10. FOLIC ACID [Concomitant]

REACTIONS (1)
  - HEART RATE INCREASED [None]
